FAERS Safety Report 6902461-2 (Version None)
Quarter: 2010Q3

REPORT INFORMATION
  Report Type: 
  Country: None (occurrence: None)
  Receive Date: 20100802
  Receipt Date: 20100802
  Transmission Date: 20110219
  Serious: Yes (Life-Threatening)
  Sender: FDA-Public Use
  Company Number: None

PATIENT
  Age: 12 Year
  Sex: Male
  Weight: 65.5 kg

DRUGS (9)
  1. ANAKINRA 150 MG/ML AMGEN [Suspect]
     Dosage: 200 MG IV EVERY 12 HOURS IV
     Route: 042
     Dates: start: 20100719, end: 20100726
  2. DEXAMETHASONE [Concomitant]
  3. ESOMEPRAZOLE MAGNESIUM [Concomitant]
  4. NEUPOGEN [Concomitant]
  5. GENTAMICIN [Concomitant]
  6. KEPPRA [Concomitant]
  7. PIPERACILLIN AND TAZOBACTAM [Concomitant]
  8. VORICONAZOLE [Concomitant]
  9. NICARDIPINE HYDROCHLORIDE [Concomitant]

REACTIONS (2)
  - BRAIN STEM ISCHAEMIA [None]
  - CEREBRAL ISCHAEMIA [None]
